FAERS Safety Report 4427503-8 (Version None)
Quarter: 2004Q3

REPORT INFORMATION
  Report Type: 
  Country: None (occurrence: None)
  Receive Date: 20040817
  Receipt Date: 20040730
  Transmission Date: 20050211
  Serious: Yes (Hospitalization)
  Sender: FDA-Public Use
  Company Number: JP-MERCK-0408USA00292

PATIENT
  Age: 71 Year
  Sex: Female
  Weight: 49 kg

DRUGS (5)
  1. NORVASC [Suspect]
     Indication: HYPERTENSION
     Route: 048
     Dates: start: 20040212, end: 20040706
  2. MAINTATE [Suspect]
     Indication: HYPERTENSION
     Route: 048
     Dates: start: 20040611, end: 20040730
  3. COZAAR [Suspect]
     Indication: HYPERTENSION
     Route: 048
     Dates: start: 20020902, end: 20040730
  4. MEVALOTIN [Suspect]
     Indication: HYPERLIPIDAEMIA
     Route: 048
     Dates: start: 20020516, end: 20040730
  5. VITAMEDIN [Concomitant]
     Indication: NUTRITIONAL SUPPORT
     Route: 048
     Dates: start: 20030501, end: 20040730

REACTIONS (3)
  - APLASIA PURE RED CELL [None]
  - DIZZINESS [None]
  - PALPITATIONS [None]
